FAERS Safety Report 9322115 (Version 1)
Quarter: 2013Q2

REPORT INFORMATION
  Report Type: Spontaneous
  Country: US (occurrence: None)
  Receive Date: 20130528
  Receipt Date: 20130528
  Transmission Date: 20140414
  Serious: Yes (Hospitalization)
  Sender: FDA-Public Use
  Company Number: NSR_01141_2013

PATIENT
  Age: 45 Year
  Sex: Female

DRUGS (1)
  1. BACLOFEN [Suspect]
     Indication: MUSCLE SPASTICITY
     Route: 037

REACTIONS (9)
  - Muscle spasticity [None]
  - Confusional state [None]
  - Device extrusion [None]
  - Device dislocation [None]
  - Delirium [None]
  - Agitation [None]
  - Device related infection [None]
  - Cerebral disorder [None]
  - Drug withdrawal syndrome [None]
